FAERS Safety Report 6400966-4 (Version None)
Quarter: 2009Q4

REPORT INFORMATION
  Report Type: 
  Country: None (occurrence: None)
  Receive Date: 20091015
  Receipt Date: 20091005
  Transmission Date: 20100525
  Serious: Yes (Hospitalization)
  Sender: FDA-Public Use
  Company Number: US-BIOGENIDEC-2009BI026125

PATIENT
  Age: 61 Year
  Sex: Male

DRUGS (3)
  1. AVONEX [Suspect]
     Indication: MULTIPLE SCLEROSIS
     Route: 030
     Dates: start: 20090508, end: 20090801
  2. AVONEX [Suspect]
     Route: 030
     Dates: start: 20090801
  3. SPIRONOLACTONE [Concomitant]

REACTIONS (10)
  - ARRHYTHMIA [None]
  - BODY TEMPERATURE INCREASED [None]
  - CRYING [None]
  - DYSPNOEA [None]
  - INFLUENZA LIKE ILLNESS [None]
  - MUSCLE ATROPHY [None]
  - PAIN [None]
  - RENAL FAILURE [None]
  - SYSTEMIC LUPUS ERYTHEMATOSUS [None]
  - VOMITING [None]
